FAERS Safety Report 21748091 (Version 2)
Quarter: 2022Q4

REPORT INFORMATION
  Report Type: Report from Study
  Country: US (occurrence: US)
  Receive Date: 20221219
  Receipt Date: 20221230
  Transmission Date: 20230112
  Serious: Yes (Death, Other)
  Sender: FDA-Public Use
  Company Number: US-002147023-NVSC2022US292727

PATIENT
  Sex: Female
  Weight: 75.5 kg

DRUGS (9)
  1. KISQALI [Suspect]
     Active Substance: RIBOCICLIB
     Indication: Brain stem glioma
     Dosage: 1 DOSAGE FORM, QD (1 TAB DAILY DAYS 1-21 OF EACH 28 DAY CYCLE) (D1-21 (2/3- 23)
     Route: 048
     Dates: start: 20220114
  2. KISQALI [Suspect]
     Active Substance: RIBOCICLIB
     Dosage: 200 MG, QD (D1-21)
     Route: 065
     Dates: start: 20220203
  3. EVEROLIMUS [Suspect]
     Active Substance: EVEROLIMUS
     Indication: Brain stem glioma
     Dosage: 1 DOSAGE FORM, QD (DAILY FOR DAYS 1-28 OF EACH 28 DAY CYCLE) (G 01-28 (2/3-3/2, EACH CYCLE WILL BE 2
     Route: 048
     Dates: start: 20220114
  4. EVEROLIMUS [Suspect]
     Active Substance: EVEROLIMUS
     Dosage: 2.5 MG, QD (01-28)
     Route: 065
     Dates: start: 20220203
  5. PANTOPRAZOLE [Concomitant]
     Active Substance: PANTOPRAZOLE
     Indication: Product used for unknown indication
     Dosage: 1 DOSAGE FORM, QD
     Route: 048
     Dates: start: 20220223
  6. DEXAMETHASONE [Concomitant]
     Active Substance: DEXAMETHASONE
     Indication: Brain oedema
     Dosage: 1 DOSAGE FORM, BID OR AS INSTRUCTED (STRENGTH 0.5 MG)
     Route: 048
     Dates: start: 20211208
  7. DEXAMETHASONE [Concomitant]
     Active Substance: DEXAMETHASONE
     Dosage: UNK (5 TABS ORALLY ONCE A DAY X 1, THEN 3 TABS ORALLY TWICE A DAY AFTERWARDS
     Route: 048
     Dates: start: 20220121
  8. DEXAMETHASONE [Concomitant]
     Active Substance: DEXAMETHASONE
     Dosage: 4 MG, BID, (4MG AM 4MG PM)
     Route: 065
  9. LOPERAMIDE [Concomitant]
     Active Substance: LOPERAMIDE
     Indication: Diarrhoea
     Dosage: 1 DOSAGE FORM, QID (AS NEEDED)
     Route: 048
     Dates: start: 20220204

REACTIONS (17)
  - Brain stem glioma [Fatal]
  - Malignant neoplasm progression [Fatal]
  - Facial paralysis [Unknown]
  - Diplopia [Unknown]
  - Visual impairment [Unknown]
  - Balance disorder [Unknown]
  - Anxiety [Unknown]
  - Gait inability [Unknown]
  - Eye movement disorder [Unknown]
  - Nystagmus [Unknown]
  - Cranial nerve disorder [Unknown]
  - Alopecia [Unknown]
  - Constipation [Unknown]
  - Acne [Unknown]
  - Headache [Unknown]
  - Rash [Unknown]
  - Product use in unapproved indication [Unknown]
